FAERS Safety Report 8826285 (Version 29)
Quarter: 2017Q2

REPORT INFORMATION
  Report Type: Spontaneous
  Country: CA (occurrence: CA)
  Receive Date: 20121005
  Receipt Date: 20170613
  Transmission Date: 20170830
  Serious: Yes (Other)
  Sender: FDA-Public Use
  Company Number: CA-ROCHE-1139928

PATIENT
  Age: 68 Year
  Sex: Female

DRUGS (21)
  1. XOLAIR [Suspect]
     Active Substance: OMALIZUMAB
     Route: 058
     Dates: start: 20090406
  2. XOLAIR [Suspect]
     Active Substance: OMALIZUMAB
     Route: 058
     Dates: start: 20131118
  3. XOLAIR [Suspect]
     Active Substance: OMALIZUMAB
     Route: 058
     Dates: start: 20140128, end: 201501
  4. XOLAIR [Suspect]
     Active Substance: OMALIZUMAB
     Route: 058
     Dates: start: 20130422
  5. XOLAIR [Suspect]
     Active Substance: OMALIZUMAB
     Route: 058
     Dates: start: 20131022
  6. XOLAIR [Suspect]
     Active Substance: OMALIZUMAB
     Dosage: EVERY WEEKS TO EVERY MONTH
     Route: 058
     Dates: start: 201506
  7. XOLAIR [Suspect]
     Active Substance: OMALIZUMAB
     Indication: ASTHMA
     Route: 058
     Dates: start: 20080827
  8. XOLAIR [Suspect]
     Active Substance: OMALIZUMAB
     Route: 058
  9. VENTOLIN [Concomitant]
     Active Substance: ALBUTEROL SULFATE
     Indication: PRODUCT USED FOR UNKNOWN INDICATION
     Dosage: UNK
     Route: 065
  10. XOLAIR [Suspect]
     Active Substance: OMALIZUMAB
     Route: 058
     Dates: start: 20160104
  11. XOLAIR [Suspect]
     Active Substance: OMALIZUMAB
     Route: 058
     Dates: start: 20160314
  12. XOLAIR [Suspect]
     Active Substance: OMALIZUMAB
     Dosage: UNK
     Route: 058
     Dates: start: 20150724
  13. XOLAIR [Suspect]
     Active Substance: OMALIZUMAB
     Dosage: UNK
     Route: 058
     Dates: start: 20170516
  14. XOLAIR [Suspect]
     Active Substance: OMALIZUMAB
     Route: 058
     Dates: start: 20160830
  15. XOLAIR [Suspect]
     Active Substance: OMALIZUMAB
     Route: 058
     Dates: start: 20161003
  16. XOLAIR [Suspect]
     Active Substance: OMALIZUMAB
     Dosage: UNK
     Route: 058
     Dates: start: 20170207
  17. XOLAIR [Suspect]
     Active Substance: OMALIZUMAB
     Route: 058
     Dates: start: 20121009
  18. XOLAIR [Suspect]
     Active Substance: OMALIZUMAB
     Route: 058
     Dates: start: 20150831
  19. XOLAIR [Suspect]
     Active Substance: OMALIZUMAB
     Route: 058
     Dates: start: 20160425
  20. XOLAIR [Suspect]
     Active Substance: OMALIZUMAB
     Route: 058
     Dates: start: 20150706
  21. XOLAIR [Suspect]
     Active Substance: OMALIZUMAB
     Route: 058

REACTIONS (23)
  - Diverticulitis [Recovered/Resolved]
  - Blood pressure increased [Not Recovered/Not Resolved]
  - Productive cough [Unknown]
  - Weight decreased [Unknown]
  - Respiratory disorder [Unknown]
  - Fall [Unknown]
  - Road traffic accident [Unknown]
  - Back injury [Recovering/Resolving]
  - Laryngitis [Unknown]
  - Oropharyngeal pain [Unknown]
  - Sinusitis [Recovering/Resolving]
  - Sneezing [Unknown]
  - Food poisoning [Not Recovered/Not Resolved]
  - Ligament sprain [Unknown]
  - Lower respiratory tract congestion [Unknown]
  - Lower respiratory tract infection [Unknown]
  - Asthma [Unknown]
  - Influenza [Unknown]
  - Body temperature decreased [Unknown]
  - Dysphonia [Unknown]
  - Malaise [Unknown]
  - Pneumonia [Recovering/Resolving]
  - Viral infection [Unknown]

NARRATIVE: CASE EVENT DATE: 2012
